FAERS Safety Report 7967865-8 (Version None)
Quarter: 2011Q4

REPORT INFORMATION
  Report Type: 
  Country: None (occurrence: None)
  Receive Date: 20111209
  Receipt Date: 20111202
  Transmission Date: 20120403
  Serious: Yes (Hospitalization)
  Sender: FDA-Public Use
  Company Number: DE-ABBOTT-11P-062-0879886-00

PATIENT
  Sex: Female

DRUGS (1)
  1. HUMIRA [Suspect]
     Indication: RHEUMATOID ARTHRITIS
     Route: 058
     Dates: start: 20110904, end: 20111101

REACTIONS (3)
  - GASTROINTESTINAL DISORDER [None]
  - ABDOMINAL WALL HAEMORRHAGE [None]
  - LAPAROSCOPY [None]
